FAERS Safety Report 7793822 (Version 4)
Quarter: 2013Q3

REPORT INFORMATION
  Report Type: Spontaneous
  Country: US (occurrence: US)
  Receive Date: 20110201
  Receipt Date: 20130819
  Transmission Date: 20140515
  Serious: Yes (Other)
  Sender: FDA-Public Use
  Company Number: US-JNJFOC-20110106107

PATIENT
  Age: 66 Year
  Sex: Male
  Weight: 91.63 kg

DRUGS (6)
  1. REMICADE [Suspect]
     Indication: RHEUMATOID ARTHRITIS
     Dosage: PT. WAS NOT COMPLIANT TO MAINTENANCE DOSING, RECEIVED INFUSIONS SPORADICALLY.
     Route: 042
     Dates: start: 2008, end: 20101223
  2. PREDNISONE [Concomitant]
     Route: 065
  3. FOLIC ACID [Concomitant]
     Route: 065
  4. IBUPROFEN [Concomitant]
     Route: 065
  5. MTX [Concomitant]
     Route: 065
  6. TYLENOL [Concomitant]

REACTIONS (5)
  - Rales [Unknown]
  - Dyspnoea [Recovered/Resolved]
  - Chest discomfort [Unknown]
  - Hypertension [Unknown]
  - Infusion related reaction [Unknown]
